FAERS Safety Report 6457413-6 (Version None)
Quarter: 2009Q4

REPORT INFORMATION
  Report Type: 
  Country: None (occurrence: None)
  Receive Date: 20091125
  Receipt Date: 20091113
  Transmission Date: 20100525
  Serious: Yes (Hospitalization)
  Sender: FDA-Public Use
  Company Number: DE-WYE-H12204709

PATIENT
  Age: 56 Year
  Sex: Female
  Weight: 108 kg

DRUGS (5)
  1. PANTOZOL [Suspect]
     Indication: HELICOBACTER GASTRITIS
     Route: 048
     Dates: start: 20090918
  2. HYZAAR [Concomitant]
     Indication: HYPERTENSION
     Route: 048
  3. BISOPROLOL [Concomitant]
     Indication: HYPERTENSION
     Dosage: UNKNOWN
     Route: 048
  4. AMOXICILLIN [Interacting]
     Indication: HELICOBACTER GASTRITIS
     Route: 048
     Dates: start: 20090918, end: 20090921
  5. CLARITHROMYCIN [Interacting]
     Indication: HELICOBACTER GASTRITIS
     Route: 048
     Dates: start: 20090918, end: 20090921

REACTIONS (3)
  - DIARRHOEA [None]
  - DIARRHOEA HAEMORRHAGIC [None]
  - DRUG INTERACTION [None]
